FAERS Safety Report 24552737 (Version 1)
Quarter: 2024Q4

REPORT INFORMATION
  Report Type: Spontaneous
  Country: IT (occurrence: IT)
  Receive Date: 20241027
  Receipt Date: 20241027
  Transmission Date: 20250114
  Serious: Yes (Hospitalization, Other)
  Sender: ALEXION PHARMACEUTICALS
  Company Number: None

PATIENT
  Age: 80 Year
  Weight: 68 kg

DRUGS (16)
  1. TAGRISSO [Suspect]
     Active Substance: OSIMERTINIB
     Indication: Lung adenocarcinoma stage IV
     Dosage: 80 MG/DIE
  2. TAGRISSO [Suspect]
     Active Substance: OSIMERTINIB
     Dosage: 80 MG/DIE
  3. TAGRISSO [Suspect]
     Active Substance: OSIMERTINIB
     Dosage: 80 MG/DIE
  4. TAGRISSO [Suspect]
     Active Substance: OSIMERTINIB
     Dosage: 80 MG/DIE
  5. LERCANIDIPINE HYDROCHLORIDE [Concomitant]
     Active Substance: LERCANIDIPINE HYDROCHLORIDE
     Dosage: ZANEDIP 10 MG 1/2 CP DOPO COLAZIONE
  6. LERCANIDIPINE HYDROCHLORIDE [Concomitant]
     Active Substance: LERCANIDIPINE HYDROCHLORIDE
     Dosage: ZANEDIP 10 MG 1/2 CP DOPO COLAZIONE
     Route: 065
  7. EZETIMIBE\ROSUVASTATIN CALCIUM [Concomitant]
     Active Substance: EZETIMIBE\ROSUVASTATIN CALCIUM
     Dosage: MAORIS (ROSUVASTATINA) 10 MG 1 CP
  8. EZETIMIBE\ROSUVASTATIN CALCIUM [Concomitant]
     Active Substance: EZETIMIBE\ROSUVASTATIN CALCIUM
     Dosage: MAORIS (ROSUVASTATINA) 10 MG 1 CP
  9. ESOMEPRAZOLE [Concomitant]
     Active Substance: ESOMEPRAZOLE
     Dosage: ESOPRAL 20 MG 1 CP AL MATTINO
  10. ESOMEPRAZOLE [Concomitant]
     Active Substance: ESOMEPRAZOLE
     Dosage: ESOPRAL 20 MG 1 CP AL MATTINO
  11. EDOXABAN TOSYLATE [Concomitant]
     Active Substance: EDOXABAN TOSYLATE
     Dosage: LIXIANA 60 MG 1 CP
  12. EDOXABAN TOSYLATE [Concomitant]
     Active Substance: EDOXABAN TOSYLATE
     Dosage: LIXIANA 60 MG 1 CP
  13. LERCANIDIPINE HYDROCHLORIDE [Concomitant]
     Active Substance: LERCANIDIPINE HYDROCHLORIDE
     Dosage: ZANIDIP 10 MG 1/2 CP
  14. LERCANIDIPINE HYDROCHLORIDE [Concomitant]
     Active Substance: LERCANIDIPINE HYDROCHLORIDE
     Dosage: ZANIDIP 10 MG 1/2 CP
  15. SILODOSIN [Concomitant]
     Active Substance: SILODOSIN
     Dosage: UROREC 1 MG 1 CP
  16. SILODOSIN [Concomitant]
     Active Substance: SILODOSIN
     Dosage: UROREC 1 MG 1 CP

REACTIONS (2)
  - Interstitial lung disease [Recovered/Resolved]
  - Acute respiratory failure [Recovered/Resolved]
